FAERS Safety Report 4314822-9 (Version None)
Quarter: 2004Q1

REPORT INFORMATION
  Report Type: 
  Country: None (occurrence: None)
  Receive Date: 20040308
  Receipt Date: 20040223
  Transmission Date: 20041129
  Serious: Yes (Other)
  Sender: FDA-Public Use
  Company Number: HQWYE425104DEC03

PATIENT
  Age: 53 Year
  Sex: Male

DRUGS (11)
  1. ARTANE [Suspect]
     Indication: PARKINSON'S DISEASE
     Dosage: 2 MG 1X PER 1 DAY  ORAL
     Route: 048
     Dates: start: 20030320, end: 20031120
  2. TUBERMIN (ETHIONAMIDE) [Concomitant]
  3. ENVIOMYCIN [Concomitant]
  4. CYCLOSERINE [Concomitant]
  5. MADOPAR (BENSERAZIDE HYDROCHLORIDE/LEVODOPA) [Concomitant]
  6. ROHYPNOL (FLUNITRAZEPAM) [Concomitant]
  7. FAMOTIDINE [Concomitant]
  8. METHYCOBAL (MECOBALAMIN) [Concomitant]
  9. BIOFERMIN R (STREPTOCOCCUS FAECALIS) [Concomitant]
  10. PURSENNID (SENNA LEAF) [Concomitant]
  11. VEGETAMIN (CHLORPROMAZINE HYDROCHLORIDE/PHENOBARBITAL/PROMETHAZINE HYD [Concomitant]

REACTIONS (1)
  - PANCYTOPENIA [None]
